FAERS Safety Report 22630775 (Version 1)
Quarter: 2023Q2

REPORT INFORMATION
  Report Type: Spontaneous
  Country: US (occurrence: None)
  Receive Date: 20230621
  Receipt Date: 20230621
  Transmission Date: 20230721
  Serious: Yes (Other)
  Sender: FDA-Public Use
  Company Number: None

PATIENT
  Age: 68 Year
  Sex: Male

DRUGS (2)
  1. JAKAFI [Suspect]
     Active Substance: RUXOLITINIB
  2. JAKAFI [Concomitant]
     Active Substance: RUXOLITINIB

REACTIONS (1)
  - Pruritus [None]

NARRATIVE: CASE EVENT DATE: 20230621
